FAERS Safety Report 5502577-1 (Version None)
Quarter: 2007Q4

REPORT INFORMATION
  Report Type: 
  Country: None (occurrence: None)
  Receive Date: 20071031
  Receipt Date: 20071022
  Transmission Date: 20080405
  Serious: Yes (Other)
  Sender: FDA-Public Use
  Company Number: PHBS2007CN17661

PATIENT
  Age: 23 Year
  Sex: Male

DRUGS (2)
  1. SEBIVO [Suspect]
     Indication: HEPATITIS B
     Route: 048
     Dates: start: 20070430, end: 20071015
  2. PEGASYS [Concomitant]

REACTIONS (5)
  - BLOOD CREATINE PHOSPHOKINASE INCREASED [None]
  - HYPERAESTHESIA [None]
  - HYPOAESTHESIA [None]
  - NERVE INJURY [None]
  - PAIN IN EXTREMITY [None]
